FAERS Safety Report 14962225 (Version 5)
Quarter: 2018Q3

REPORT INFORMATION
  Report Type: Report from Study
  Country: CA (occurrence: CA)
  Receive Date: 20180601
  Receipt Date: 20180907
  Transmission Date: 20181010
  Serious: Yes (Hospitalization, Other)
  Sender: FDA-Public Use
  Company Number: CA-ROCHE-1773228

PATIENT
  Age: 72 Year
  Sex: Female
  Weight: 77 kg

DRUGS (15)
  1. QUININE [Suspect]
     Active Substance: QUININE
     Indication: PRODUCT USED FOR UNKNOWN INDICATION
     Route: 065
  2. OXYNEO [Concomitant]
     Active Substance: OXYCODONE
  3. SALBUTAMOL [Concomitant]
     Active Substance: ALBUTEROL
  4. SPIRIVA [Concomitant]
     Active Substance: TIOTROPIUM BROMIDE MONOHYDRATE
  5. ACTEMRA [Suspect]
     Active Substance: TOCILIZUMAB
     Route: 042
     Dates: start: 20180524
  6. LIPITOR [Concomitant]
     Active Substance: ATORVASTATIN CALCIUM
  7. ACTEMRA [Suspect]
     Active Substance: TOCILIZUMAB
     Indication: RHEUMATOID ARTHRITIS
     Dosage: RECEIVED ON 26/APR/2017.
     Route: 042
     Dates: start: 20160219
  8. GABAPENTIN. [Concomitant]
     Active Substance: GABAPENTIN
  9. ATENOL [Concomitant]
     Active Substance: ATENOLOL
  10. FUROSEMIDE. [Concomitant]
     Active Substance: FUROSEMIDE
  11. DILANTIN [Concomitant]
     Active Substance: PHENYTOIN
  12. AMOXICILLIN. [Concomitant]
     Active Substance: AMOXICILLIN
  13. ACTEMRA [Suspect]
     Active Substance: TOCILIZUMAB
     Dosage: 16TH INFUSIO
     Route: 042
     Dates: start: 20170621
  14. PRAMIPEXOLE. [Concomitant]
     Active Substance: PRAMIPEXOLE
  15. SYMBICORT [Concomitant]
     Active Substance: BUDESONIDE\FORMOTEROL FUMARATE DIHYDRATE

REACTIONS (15)
  - Pneumonia [Recovered/Resolved]
  - Dyskinesia [Not Recovered/Not Resolved]
  - Muscle strain [Unknown]
  - Rib fracture [Unknown]
  - Rash [Unknown]
  - Blood pressure diastolic decreased [Unknown]
  - Cough [Recovered/Resolved]
  - Cardiac failure congestive [Recovered/Resolved]
  - Nasopharyngitis [Recovered/Resolved]
  - Respiratory rate increased [Unknown]
  - Bronchitis [Recovered/Resolved]
  - Aortic aneurysm [Unknown]
  - Rhinorrhoea [Recovered/Resolved]
  - Weight increased [Unknown]
  - Oxygen saturation decreased [Unknown]

NARRATIVE: CASE EVENT DATE: 20160608
